FAERS Safety Report 21830158 (Version 1)
Quarter: 2023Q1

REPORT INFORMATION
  Report Type: Spontaneous
  Country: CN (occurrence: CN)
  Receive Date: 20230106
  Receipt Date: 20230106
  Transmission Date: 20230417
  Serious: Yes (Other)
  Sender: FDA-Public Use
  Company Number: CN-MLMSERVICE-20221228-4008301-1

PATIENT
  Age: 50 Year
  Sex: Female
  Weight: 62 kg

DRUGS (3)
  1. CISPLATIN [Suspect]
     Active Substance: CISPLATIN
     Indication: Lung adenocarcinoma stage IV
  2. PEMETREXED [Suspect]
     Active Substance: PEMETREXED
     Indication: Lung adenocarcinoma stage IV
  3. GEFITINIB [Concomitant]
     Active Substance: GEFITINIB
     Indication: Lung adenocarcinoma stage IV

REACTIONS (2)
  - Hepatic function abnormal [Unknown]
  - Pneumonia [Unknown]
